FAERS Safety Report 9045772 (Version 1)
Quarter: 2013Q1

REPORT INFORMATION
  Report Type: Report from Study
  Country: US (occurrence: US)
  Receive Date: 20130201
  Receipt Date: 20130201
  Transmission Date: 20140127
  Serious: No
  Sender: FDA-Public Use
  Company Number: US-ABBOTT-12P-163-0914435-00

PATIENT
  Sex: Female
  Weight: 93.07 kg

DRUGS (6)
  1. HUMIRA [Suspect]
     Indication: COLITIS ULCERATIVE
     Route: 058
     Dates: start: 2010, end: 201204
  2. SYNTHROID [Concomitant]
     Indication: HYPOTHYROIDISM
     Route: 048
     Dates: start: 2001, end: 201106
  3. SYNTHROID [Concomitant]
     Route: 048
     Dates: start: 201106, end: 201112
  4. SYNTHROID [Concomitant]
     Route: 048
     Dates: start: 201112
  5. LIALDA [Concomitant]
     Indication: PRODUCT USED FOR UNKNOWN INDICATION
  6. BALSALAZIDE [Concomitant]
     Indication: PRODUCT USED FOR UNKNOWN INDICATION

REACTIONS (16)
  - Joint swelling [Recovered/Resolved]
  - Swelling [Recovered/Resolved]
  - Weight increased [Recovered/Resolved]
  - Arthritis [Recovering/Resolving]
  - Drug ineffective [Not Recovered/Not Resolved]
  - Gait disturbance [Recovered/Resolved]
  - Blood thyroid stimulating hormone abnormal [Unknown]
  - Off label use [Unknown]
  - Drug hypersensitivity [Unknown]
  - Type IV hypersensitivity reaction [Unknown]
  - Myopathy [Unknown]
  - Blood thyroid stimulating hormone abnormal [Unknown]
  - Joint swelling [Not Recovered/Not Resolved]
  - Weight increased [Recovered/Resolved]
  - Arthralgia [Not Recovered/Not Resolved]
  - Neuralgia [Not Recovered/Not Resolved]
